FAERS Safety Report 9625766 (Version 2)
Quarter: 2013Q4

REPORT INFORMATION
  Report Type: Spontaneous
  Country: JP (occurrence: JP)
  Receive Date: 20131016
  Receipt Date: 20131107
  Transmission Date: 20140711
  Serious: Yes (Other)
  Sender: FDA-Public Use
  Company Number: PHHY2013JP114668

PATIENT
  Sex: 0
  Weight: .93 kg

DRUGS (3)
  1. CARBAMAZEPINE [Suspect]
     Route: 064
  2. VALPROIC ACID [Suspect]
     Route: 064
  3. CLOBAZAM [Suspect]
     Route: 064

REACTIONS (3)
  - Low birth weight baby [Recovered/Resolved]
  - Premature baby [Recovered/Resolved]
  - Foetal exposure during pregnancy [Unknown]
